FAERS Safety Report 4490285-8 (Version None)
Quarter: 2004Q4

REPORT INFORMATION
  Report Type: 
  Country: None (occurrence: None)
  Receive Date: 20041101
  Receipt Date: 20041022
  Transmission Date: 20050328
  Serious: Yes (Hospitalization)
  Sender: FDA-Public Use
  Company Number: CA-MERCK-0410CAN00368

PATIENT
  Age: 94 Year
  Sex: Female

DRUGS (8)
  1. VIOXX [Suspect]
     Route: 048
  2. MORPHINE [Concomitant]
     Route: 065
  3. ELAVIL [Concomitant]
     Route: 065
  4. RAMIPRIL [Concomitant]
     Route: 065
  5. LITHIUM CARBONATE [Concomitant]
     Route: 065
  6. PREDNISONE [Concomitant]
     Route: 065
  7. [THERAPY UNSPECIFIED] [Concomitant]
     Indication: POLYURIA
     Route: 065
  8. CORTICOSTEROIDS (UNSPECIFIED) [Concomitant]
     Route: 065

REACTIONS (5)
  - CARDIAC DISORDER [None]
  - CONTUSION [None]
  - FATIGUE [None]
  - OEDEMA PERIPHERAL [None]
  - PERICARDIAL EFFUSION [None]
